FAERS Safety Report 4583819-6 (Version None)
Quarter: 2005Q1

REPORT INFORMATION
  Report Type: 
  Country: None (occurrence: None)
  Receive Date: 20050125
  Receipt Date: 20041011
  Transmission Date: 20050727
  Serious: No
  Sender: FDA-Public Use
  Company Number: USA041080859

PATIENT
  Age: 55 Year
  Sex: Female
  Weight: 45 kg

DRUGS (7)
  1. EVISTA [Suspect]
     Dosage: 60 MG/1 DAY
     Dates: start: 20000101, end: 20041005
  2. FORTEO [Suspect]
     Dosage: 20 UG/1 DAY
     Dates: start: 20041005
  3. LAMICTAL [Concomitant]
  4. TOPIMAX (TOPIRAMATE) [Concomitant]
  5. ACTONEL [Concomitant]
  6. DILANTIN [Concomitant]
  7. CALCIUM GLUCONATE [Concomitant]

REACTIONS (7)
  - ARTHRALGIA [None]
  - FOOT FRACTURE [None]
  - INFECTION [None]
  - INJECTION SITE ERYTHEMA [None]
  - INJECTION SITE HAEMORRHAGE [None]
  - PAIN IN EXTREMITY [None]
  - PARAESTHESIA [None]
